FAERS Safety Report 5160081-7 (Version None)
Quarter: 2006Q4

REPORT INFORMATION
  Report Type: 
  Country: None (occurrence: None)
  Receive Date: 20061129
  Receipt Date: 20060918
  Transmission Date: 20070319
  Serious: No
  Sender: FDA-Public Use
  Company Number: US-GLAXOSMITHKLINE-A0620560A

PATIENT
  Age: 57 Year
  Sex: Male

DRUGS (3)
  1. WELLBUTRIN SR [Suspect]
     Indication: POST-TRAUMATIC STRESS DISORDER
     Dosage: 100MG THREE TIMES PER DAY
     Route: 048
  2. KLONOPIN [Concomitant]
  3. SONATA [Concomitant]

REACTIONS (3)
  - HYPERTENSION [None]
  - PANIC ATTACK [None]
  - PHARMACEUTICAL PRODUCT COMPLAINT [None]
